FAERS Safety Report 7619322-6 (Version None)
Quarter: 2011Q3

REPORT INFORMATION
  Report Type: 
  Country: None (occurrence: None)
  Receive Date: 20110719
  Receipt Date: 20110711
  Transmission Date: 20111222
  Serious: No
  Sender: FDA-Public Use
  Company Number: US-B.I. PHARMACEUTICALS,INC./RIDGEFIELD-2011-BP-17453BP

PATIENT
  Sex: Female

DRUGS (7)
  1. SOTALOL HCL [Concomitant]
     Indication: ATRIAL FIBRILLATION
     Route: 048
  2. CRESTOR [Concomitant]
     Indication: BLOOD CHOLESTEROL INCREASED
     Route: 048
  3. PRADAXA [Suspect]
     Indication: ATRIAL FIBRILLATION
     Dosage: 300 MG
     Route: 048
     Dates: start: 20110427, end: 20110620
  4. LASIX [Concomitant]
     Indication: HYPERTENSION
     Route: 048
  5. ASPIRIN [Concomitant]
     Indication: ATRIAL FIBRILLATION
     Route: 048
  6. ADALAT [Concomitant]
     Indication: HYPERTENSION
     Route: 048
  7. FLUOXETINE [Concomitant]
     Indication: DEPRESSION
     Route: 048

REACTIONS (1)
  - DIZZINESS [None]
